FAERS Safety Report 17261114 (Version 1)
Quarter: 2020Q1

REPORT INFORMATION
  Report Type: Spontaneous
  Country: US (occurrence: US)
  Receive Date: 20200113
  Receipt Date: 20200113
  Transmission Date: 20200409
  Serious: Yes (Hospitalization, Other)
  Sender: FDA-Public Use
  Company Number: US-JNJFOC-20200109858

PATIENT
  Sex: Female
  Weight: 118.04 kg

DRUGS (11)
  1. CELEBREX [Suspect]
     Active Substance: CELECOXIB
     Indication: PRODUCT USED FOR UNKNOWN INDICATION
     Route: 048
     Dates: end: 201910
  2. CARVEDILOL. [Concomitant]
     Active Substance: CARVEDILOL
  3. Q SORB CO Q-10 (UBIDECARENONE) [Suspect]
     Active Substance: UBIDECARENONE
     Indication: NUTRITIONAL SUPPLEMENTATION
     Route: 048
     Dates: start: 201910, end: 20191006
  4. HYDRALAZINE [Concomitant]
     Active Substance: HYDRALAZINE HYDROCHLORIDE
  5. DURAGESIC [Suspect]
     Active Substance: FENTANYL
     Indication: PRODUCT USED FOR UNKNOWN INDICATION
     Route: 065
     Dates: end: 201910
  6. METFORMIN [Concomitant]
     Active Substance: METFORMIN HYDROCHLORIDE
  7. ATIVAN [Concomitant]
     Active Substance: LORAZEPAM
  8. CURCUMIN [Suspect]
     Active Substance: CURCUMIN
     Indication: NUTRITIONAL SUPPLEMENTATION
     Route: 048
     Dates: start: 201910, end: 20191006
  9. LYRICA [Concomitant]
     Active Substance: PREGABALIN
  10. ODOURLESS GARLIC [Suspect]
     Active Substance: DIETARY SUPPLEMENT
     Indication: NUTRITIONAL SUPPLEMENTATION
     Route: 048
     Dates: end: 20191006
  11. PROZAC [Concomitant]
     Active Substance: FLUOXETINE HYDROCHLORIDE

REACTIONS (3)
  - Urinary tract infection [Unknown]
  - Fall [Unknown]
  - Confusional state [Unknown]

NARRATIVE: CASE EVENT DATE: 2019
